FAERS Safety Report 5277257-0 (Version None)
Quarter: 2007Q1

REPORT INFORMATION
  Report Type: 
  Country: None (occurrence: None)
  Receive Date: 20061213
  Receipt Date: 20060710
  Transmission Date: 20070707
  Serious: No
  Sender: FDA-Public Use
  Company Number: 2006UW14203

PATIENT
  Age: 54 Year
  Sex: Male
  Weight: 114.75 kg

DRUGS (8)
  1. SEROQUEL [Suspect]
     Indication: BIPOLAR DISORDER
     Dosage: 1200 MG QD PO
     Route: 048
     Dates: start: 20050101
  2. LEXAPRO [Concomitant]
  3. BUMEX [Concomitant]
  4. ALBUTEROL [Concomitant]
  5. VASOTEC [Concomitant]
  6. XANAX [Concomitant]
  7. REQUIP [Concomitant]
  8. LUNESTA [Concomitant]

REACTIONS (3)
  - ANXIETY [None]
  - DELUSION [None]
  - SUICIDAL IDEATION [None]
